FAERS Safety Report 4535754-7 (Version None)
Quarter: 2004Q4

REPORT INFORMATION
  Report Type: 
  Country: None (occurrence: None)
  Receive Date: 20041223
  Receipt Date: 20040213
  Transmission Date: 20050328
  Serious: No
  Sender: FDA-Public Use
  Company Number: US-GLAXOSMITHKLINE-A0498166A

PATIENT
  Age: 40 Year
  Sex: Male

DRUGS (3)
  1. FLONASE [Suspect]
     Dosage: 4SPR TWICE PER DAY
     Route: 045
  2. AFRIN [Concomitant]
  3. CLARITIN [Concomitant]

REACTIONS (1)
  - EPISTAXIS [None]
